FAERS Safety Report 4840962-1 (Version None)
Quarter: 2005Q4

REPORT INFORMATION
  Report Type: 
  Country: None (occurrence: None)
  Receive Date: 20051130
  Receipt Date: 20050805
  Transmission Date: 20060501
  Serious: No
  Sender: FDA-Public Use
  Company Number: US-BRISTOL-MYERS SQUIBB COMPANY-13065248

PATIENT
  Age: 63 Year
  Sex: Female

DRUGS (4)
  1. ABILIFY [Suspect]
     Indication: BIPOLAR DISORDER
     Dates: start: 20050725
  2. LEXAPRO [Concomitant]
     Dates: start: 20050725
  3. EFFEXOR [Concomitant]
  4. TRILEPTAL [Concomitant]

REACTIONS (3)
  - CONFUSIONAL STATE [None]
  - DYSPHASIA [None]
  - MEMORY IMPAIRMENT [None]
